FAERS Safety Report 6127162-2 (Version None)
Quarter: 2009Q1

REPORT INFORMATION
  Report Type: 
  Country: None (occurrence: None)
  Receive Date: 20090320
  Receipt Date: 20090317
  Transmission Date: 20090719
  Serious: Yes (Hospitalization)
  Sender: FDA-Public Use
  Company Number: US-ABBOTT-09P-163-0562912-00

PATIENT
  Sex: Female
  Weight: 129 kg

DRUGS (4)
  1. HUMIRA [Suspect]
     Indication: RHEUMATOID ARTHRITIS
     Route: 058
     Dates: start: 20090217
  2. AZULFIDINE EN-TABS [Concomitant]
     Indication: ARTHRALGIA
     Route: 048
  3. DAYPRO [Concomitant]
     Indication: RHEUMATOID ARTHRITIS
     Route: 048
  4. ACETAMINOPHEN [Concomitant]
     Indication: PAIN
     Route: 048

REACTIONS (3)
  - CHEST DISCOMFORT [None]
  - CHEST PAIN [None]
  - PAIN IN EXTREMITY [None]
